FAERS Safety Report 6810530-0 (Version None)
Quarter: 2010Q2

REPORT INFORMATION
  Report Type: 
  Country: None (occurrence: None)
  Receive Date: 20100630
  Receipt Date: 20100616
  Transmission Date: 20101027
  Serious: Yes (Hospitalization, Disabling, Other)
  Sender: FDA-Public Use
  Company Number: FR-ELI_LILLY_AND_COMPANY-FR201006004611

PATIENT
  Age: 90 Year
  Sex: Female

DRUGS (3)
  1. FORTEO [Suspect]
     Route: 058
  2. TRAMADOL [Concomitant]
  3. MORPHINAN DERIVATIVES [Concomitant]

REACTIONS (4)
  - BONE NEOPLASM [None]
  - PARAPLEGIA [None]
  - RADICULAR PAIN [None]
  - SPINAL CORD COMPRESSION [None]
